FAERS Safety Report 6648424-6 (Version None)
Quarter: 2010Q1

REPORT INFORMATION
  Report Type: 
  Country: None (occurrence: None)
  Receive Date: 20100324
  Receipt Date: 20100316
  Transmission Date: 20100710
  Serious: Yes (Other)
  Sender: FDA-Public Use
  Company Number: US-BAYER-201013211BCC

PATIENT
  Age: 44 Year
  Sex: Male
  Weight: 84 kg

DRUGS (4)
  1. ALKA-SELTZER ORIGINAL [Suspect]
     Indication: HANGOVER
     Route: 048
     Dates: start: 20100306
  2. GOODYS [Concomitant]
     Indication: HANGOVER
     Route: 065
     Dates: start: 20100306, end: 20100306
  3. GOODYS [Concomitant]
     Route: 065
     Dates: start: 20100308, end: 20100308
  4. GOODYS [Concomitant]
     Route: 065
     Dates: start: 20100314, end: 20100314

REACTIONS (2)
  - ABDOMINAL PAIN UPPER [None]
  - RECTAL HAEMORRHAGE [None]
